FAERS Safety Report 6149091-0 (Version None)
Quarter: 2009Q2

REPORT INFORMATION
  Report Type: 
  Country: None (occurrence: None)
  Receive Date: 20090409
  Receipt Date: 20090331
  Transmission Date: 20091009
  Serious: Yes (Other)
  Sender: FDA-Public Use
  Company Number: PHHY2009AU12709

PATIENT
  Sex: Male

DRUGS (6)
  1. CLOZARIL [Suspect]
     Dosage: UNK
  2. CLOZARIL [Interacting]
     Dosage: 500 MG DAILY
  3. CLOZARIL [Interacting]
     Dosage: 475 MG DAILY
  4. CLOZARIL [Interacting]
     Dosage: 450 MG DAILY
  5. FLUVOXAMINE MALEATE [Interacting]
  6. PAROXETINE HCL [Concomitant]

REACTIONS (2)
  - ANTIPSYCHOTIC DRUG LEVEL INCREASED [None]
  - OBSESSIVE-COMPULSIVE DISORDER [None]
